FAERS Safety Report 4712717-X (Version None)
Quarter: 2005Q3

REPORT INFORMATION
  Report Type: 
  Country: None (occurrence: None)
  Receive Date: 20050706
  Receipt Date: 20041117
  Transmission Date: 20060218
  Serious: Yes (Other)
  Sender: FDA-Public Use
  Company Number: 2004US001253

PATIENT
  Age: 60 Year
  Sex: Female
  Weight: 93.4 kg

DRUGS (11)
  1. ADENOSCAN [Suspect]
     Indication: SCAN MYOCARDIAL PERFUSION
     Dosage: 52.20 MG, TOTAL DOSE, IV NOS
     Route: 042
     Dates: start: 20040917, end: 20040917
  2. PHENOBARBITAL [Concomitant]
  3. REMERON [Concomitant]
  4. ZYPREXA [Concomitant]
  5. NAPROXEN [Concomitant]
  6. RESTORIL [Concomitant]
  7. TRAZODONE (TRAZODONE) [Concomitant]
  8. DIAZEPAM [Concomitant]
  9. ABILIFY [Concomitant]
  10. HYDROCHLOROTHIAZIDE [Concomitant]
  11. VALIUM [Concomitant]

REACTIONS (1)
  - CARDIAC ARREST [None]
